FAERS Safety Report 12462376 (Version 2)
Quarter: 2016Q2

REPORT INFORMATION
  Report Type: Spontaneous
  Country: US (occurrence: US)
  Receive Date: 20160614
  Receipt Date: 20160625
  Transmission Date: 20160815
  Serious: Yes (Other)
  Sender: FDA-Public Use
  Company Number: US-JNJFOC-20160607268

PATIENT
  Age: 14 Year
  Sex: Female

DRUGS (2)
  1. PARACETAMOL [Suspect]
     Active Substance: ACETAMINOPHEN
     Indication: PRODUCT USED FOR UNKNOWN INDICATION
     Dosage: 94 TABLETS OF 325MG PARACETAMOL (30.55 G)
     Route: 048
  2. IBUPROFEN. [Concomitant]
     Active Substance: IBUPROFEN
     Indication: PRODUCT USED FOR UNKNOWN INDICATION
     Dosage: SIX TABLETS OF 200MG IBUPROFEN
     Route: 048

REACTIONS (4)
  - Hepatotoxicity [Recovered/Resolved]
  - Rebound effect [Recovered/Resolved]
  - Liver injury [Recovered/Resolved]
  - Overdose [Recovered/Resolved]
